FAERS Safety Report 24707703 (Version 1)
Quarter: 2024Q4

REPORT INFORMATION
  Report Type: Spontaneous
  Country: CN (occurrence: CN)
  Receive Date: 20241206
  Receipt Date: 20241206
  Transmission Date: 20250115
  Serious: Yes (Other)
  Sender: MEITHEAL PHARMACEUTICALS
  Company Number: CN-MEITHEAL-2024MPLIT00422

PATIENT
  Age: 60 Year
  Sex: Female

DRUGS (11)
  1. CARBOPLATIN [Suspect]
     Active Substance: CARBOPLATIN
     Indication: Ovarian cancer
     Dosage: FROM MARCH 17 FOR 4 CYCLES
     Route: 065
     Dates: start: 20230317, end: 2023
  2. CARBOPLATIN [Suspect]
     Active Substance: CARBOPLATIN
     Dosage: FIFTH CYCLE  AFTER SURGERY
     Route: 065
     Dates: start: 20230802
  3. GEMCITABINE [Suspect]
     Active Substance: GEMCITABINE
     Indication: Ovarian cancer
     Dosage: NOVEMBER 29
     Route: 065
     Dates: start: 20231129
  4. PACLITAXEL [Suspect]
     Active Substance: PACLITAXEL
     Indication: Ovarian cancer
     Dosage: FROM MARCH 17 FOR 4 CYCLES
     Route: 065
     Dates: start: 20230317
  5. PACLITAXEL [Suspect]
     Active Substance: PACLITAXEL
     Dosage: D1 D8, FIFTH CYCLE  AFTER SURGERY
     Route: 065
  6. REMTOLUMAB [Suspect]
     Active Substance: REMTOLUMAB
     Indication: Ovarian cancer
     Dosage: D1
     Route: 065
  7. BEVACIZUMAB [Suspect]
     Active Substance: BEVACIZUMAB
     Indication: Ovarian cancer
     Route: 065
     Dates: start: 20230317, end: 2023
  8. BEVACIZUMAB [Suspect]
     Active Substance: BEVACIZUMAB
     Dosage: AUG-02
     Route: 065
     Dates: start: 20230802, end: 2023
  9. BEVACIZUMAB [Suspect]
     Active Substance: BEVACIZUMAB
     Dosage: D1 FOR 3 CYCLES
     Route: 065
  10. TAXOL [Suspect]
     Active Substance: PACLITAXEL
     Indication: Ovarian cancer
     Route: 065
     Dates: start: 20230802
  11. DOXORUBICIN HYDROCHLORIDE [Concomitant]
     Active Substance: DOXORUBICIN HYDROCHLORIDE
     Indication: Ovarian cancer
     Dosage: LIPOSOME
     Route: 065

REACTIONS (1)
  - Rhabdomyolysis [Unknown]
